FAERS Safety Report 5585233-3 (Version None)
Quarter: 2008Q1

REPORT INFORMATION
  Report Type: 
  Country: None (occurrence: None)
  Receive Date: 20080109
  Receipt Date: 20080107
  Transmission Date: 20080703
  Serious: Yes (Life-Threatening, Hospitalization, Other)
  Sender: FDA-Public Use
  Company Number: JP-WYE-H00892607

PATIENT
  Sex: Female
  Weight: 53 kg

DRUGS (7)
  1. MYLOTARG [Suspect]
     Indication: ACUTE MYELOID LEUKAEMIA
     Route: 041
     Dates: start: 20070803, end: 20070803
  2. MYLOTARG [Suspect]
     Route: 041
     Dates: start: 20070822, end: 20070822
  3. GRAN [Concomitant]
     Indication: NEUTROPENIA
     Route: 058
     Dates: start: 20070913, end: 20070921
  4. PREDONINE [Concomitant]
     Route: 048
     Dates: start: 20070810, end: 20070921
  5. VANCOMYCIN [Concomitant]
     Route: 041
     Dates: start: 20070912, end: 20070921
  6. MEROPENEM [Concomitant]
     Route: 041
     Dates: start: 20070806, end: 20070809
  7. AMBISOME [Concomitant]
     Route: 041
     Dates: start: 20070810, end: 20070921

REACTIONS (4)
  - GASTROINTESTINAL HAEMORRHAGE [None]
  - NEUROGENIC BLADDER [None]
  - PNEUMONIA [None]
  - VENOOCCLUSIVE LIVER DISEASE [None]
